FAERS Safety Report 18973876 (Version 1)
Quarter: 2021Q1

REPORT INFORMATION
  Report Type: Spontaneous
  Country: GB (occurrence: GB)
  Receive Date: 20210305
  Receipt Date: 20210305
  Transmission Date: 20210420
  Serious: Yes (Other)
  Sender: FDA-Public Use
  Company Number: GB-TEVA-2021-GB-1883935

PATIENT
  Age: 32 Year
  Sex: Female
  Weight: 80.73 kg

DRUGS (1)
  1. TRIMETHOPRIM. [Suspect]
     Active Substance: TRIMETHOPRIM
     Indication: KIDNEY INFECTION
     Dosage: 400 MILLIGRAM DAILY;
     Route: 048
     Dates: start: 20210201, end: 20210204

REACTIONS (1)
  - Gastritis [Not Recovered/Not Resolved]

NARRATIVE: CASE EVENT DATE: 20210202
